FAERS Safety Report 8254447-6 (Version None)
Quarter: 2012Q2

REPORT INFORMATION
  Report Type: 
  Country: None (occurrence: None)
  Receive Date: 20120403
  Receipt Date: 20120326
  Transmission Date: 20120825
  Serious: Yes (Death, Hospitalization)
  Sender: FDA-Public Use
  Company Number: RO-BRISTOL-MYERS SQUIBB COMPANY-16474967

PATIENT
  Age: 71 Year
  Sex: Male

DRUGS (9)
  1. YERVOY [Suspect]
     Indication: MALIGNANT MELANOMA
     Dosage: 4 DOSES
     Route: 042
     Dates: start: 20120113, end: 20120316
  2. AMOXICILLIN [Concomitant]
     Route: 042
     Dates: start: 20120307, end: 20120320
  3. CARBAZOCHROME SALICYLATE [Concomitant]
     Dosage: 1 DF = 3 VIALS
     Route: 042
     Dates: start: 20120307, end: 20120320
  4. FUROSEMIDE [Concomitant]
     Dosage: 1 DF - 1 VIALS
     Route: 042
  5. HYDROCORTISONE HEMISUCCINATE [Concomitant]
     Route: 042
     Dates: start: 20120307, end: 20120320
  6. MANNITOL [Concomitant]
     Route: 042
     Dates: start: 20120307, end: 20120320
  7. PHYTONADIONE [Concomitant]
     Dosage: 1 DF = 3 VIALS
     Route: 042
     Dates: start: 20120307, end: 20120320
  8. ETAMSYLATE [Concomitant]
     Route: 042
     Dates: start: 20120307, end: 20120320
  9. DEXTROSE 5% [Concomitant]
     Route: 042
     Dates: start: 20120307, end: 20120320

REACTIONS (1)
  - RESPIRATORY FAILURE [None]
